FAERS Safety Report 21908268 (Version 1)
Quarter: 2023Q1

REPORT INFORMATION
  Report Type: Spontaneous
  Country: US (occurrence: None)
  Receive Date: 20230124
  Receipt Date: 20230124
  Transmission Date: 20230417
  Serious: Yes (Hospitalization, Other)
  Sender: FDA-Public Use
  Company Number: None

PATIENT
  Age: 84 Year
  Sex: Male
  Weight: 64.41 kg

DRUGS (2)
  1. XULTOPHY 100/3.6 [Suspect]
     Active Substance: INSULIN DEGLUDEC\LIRAGLUTIDE
  2. COSMETICS [Suspect]
     Active Substance: COSMETICS

REACTIONS (4)
  - Mental status changes [None]
  - Hyperglycaemia [None]
  - Liver abscess [None]
  - Klebsiella infection [None]

NARRATIVE: CASE EVENT DATE: 20221227
